FAERS Safety Report 5956776-5 (Version None)
Quarter: 2008Q4

REPORT INFORMATION
  Report Type: 
  Country: None (occurrence: None)
  Receive Date: 20081118
  Receipt Date: 20081106
  Transmission Date: 20090506
  Serious: Yes (Death, Hospitalization)
  Sender: FDA-Public Use
  Company Number: FR-ROCHE-595932

PATIENT
  Sex: Female
  Weight: 71 kg

DRUGS (7)
  1. VALGANCICLOVIR [Suspect]
     Route: 048
     Dates: start: 20080926, end: 20081104
  2. DEROXAT [Concomitant]
     Indication: DEPRESSION
     Route: 048
     Dates: start: 20080517, end: 20081104
  3. FLODIL [Concomitant]
     Indication: HYPERTENSION
     Route: 048
     Dates: start: 20080715, end: 20081104
  4. EUPRESSYL [Concomitant]
     Indication: HYPERTENSION
     Route: 048
     Dates: start: 20080715, end: 20081104
  5. PRAVASTATIN [Concomitant]
     Route: 048
     Dates: start: 20080701, end: 20081104
  6. NEORAL [Concomitant]
     Indication: IMMUNOSUPPRESSION
     Route: 048
     Dates: start: 20080320, end: 20081104
  7. MYFORTIC [Concomitant]
     Indication: IMMUNOSUPPRESSION
     Route: 048
     Dates: start: 20080716, end: 20081104

REACTIONS (1)
  - COLITIS [None]
